FAERS Safety Report 4870788-4 (Version None)
Quarter: 2006Q1

REPORT INFORMATION
  Report Type: 
  Country: None (occurrence: None)
  Receive Date: 20060103
  Receipt Date: 20050715
  Transmission Date: 20060701
  Serious: Yes (Hospitalization)
  Sender: FDA-Public Use
  Company Number: US-MERCK-0507USA02383

PATIENT
  Age: 72 Year
  Sex: Female
  Weight: 82 kg

DRUGS (9)
  1. VIOXX [Suspect]
     Indication: ARTHRITIS
     Route: 048
     Dates: start: 20000501, end: 20040101
  2. PREMARIN [Concomitant]
     Route: 065
     Dates: start: 20001101
  3. XENICAL [Concomitant]
     Route: 065
     Dates: start: 20000501, end: 20020101
  4. MERIDIA [Concomitant]
     Route: 065
     Dates: start: 20020201
  5. MORPHINE [Concomitant]
     Route: 065
  6. MEPREDNISONE [Concomitant]
     Route: 065
  7. ATENOLOL [Concomitant]
     Route: 065
  8. FUROSEMIDE [Concomitant]
     Route: 065
  9. POTASSIUM (UNSPECIFIED) [Concomitant]
     Route: 065

REACTIONS (5)
  - ACUTE MYOCARDIAL INFARCTION [None]
  - BLOOD CHOLESTEROL INCREASED [None]
  - CARDIAC FAILURE CONGESTIVE [None]
  - DYSPNOEA [None]
  - SWELLING [None]
